FAERS Safety Report 7442600-0 (Version None)
Quarter: 2011Q2

REPORT INFORMATION
  Report Type: 
  Country: None (occurrence: None)
  Receive Date: 20110428
  Receipt Date: 20110418
  Transmission Date: 20111010
  Serious: Yes (Hospitalization)
  Sender: FDA-Public Use
  Company Number: PHHY2010JP59742

PATIENT
  Age: 64 Year
  Sex: Male
  Weight: 60 kg

DRUGS (11)
  1. AFINITOR [Suspect]
     Indication: METASTATIC RENAL CELL CARCINOMA
     Dosage: 10 MG, UNK
     Route: 048
     Dates: start: 20100810, end: 20100831
  2. STEROIDS NOS [Concomitant]
  3. PREDNISOLONE [Concomitant]
     Dosage: 5 MG, UNK
     Route: 048
     Dates: start: 20100401
  4. KENALOG [Concomitant]
     Indication: PROPHYLAXIS
     Dosage: UNK
     Dates: start: 20100809, end: 20100906
  5. GASTER [Concomitant]
     Dosage: UNK
     Route: 048
  6. BETAMETHASONE [Concomitant]
     Dosage: UNK
     Route: 048
  7. SUNITINIB MALATE [Concomitant]
     Dosage: UNK
     Route: 048
     Dates: start: 20080925, end: 20091227
  8. AZUNOL [Concomitant]
     Indication: PROPHYLAXIS
     Dosage: UNK
     Dates: start: 20100809, end: 20100906
  9. TEGRETOL [Suspect]
     Dosage: UNK
     Route: 048
  10. NOVOLIN 70/30 [Concomitant]
     Dosage: 58 IU, UNK
     Route: 058
     Dates: start: 20100401
  11. INTERFERON ALFA [Concomitant]
     Dosage: 3000000 IU, UNK
     Dates: start: 20050301, end: 20080701

REACTIONS (6)
  - INTERSTITIAL LUNG DISEASE [None]
  - PYREXIA [None]
  - SKIN DISORDER [None]
  - HERPES ZOSTER [None]
  - DYSPNOEA [None]
  - TOXIC SKIN ERUPTION [None]
